FAERS Safety Report 8378890-X (Version None)
Quarter: 2012Q2

REPORT INFORMATION
  Report Type: 
  Country: None (occurrence: None)
  Receive Date: 20120522
  Receipt Date: 20120522
  Transmission Date: 20120825
  Serious: Yes (Other)
  Sender: FDA-Public Use
  Company Number: None

PATIENT
  Age: 26 Year
  Sex: Female
  Weight: 82 kg

DRUGS (1)
  1. HYDROGEN PEROXIDE SOLUTION [Suspect]
     Indication: TOOTH DISCOLOURATION
     Dosage: AS DIRECTED, ONCE, DENTAL
     Route: 004
     Dates: start: 20120225, end: 20120225

REACTIONS (6)
  - GINGIVAL ERYTHEMA [None]
  - GINGIVAL SWELLING [None]
  - GINGIVAL BLISTER [None]
  - ORAL DISCOMFORT [None]
  - CHEMICAL INJURY [None]
  - HYPOPHAGIA [None]
